FAERS Safety Report 19645792 (Version 2)
Quarter: 2021Q3

REPORT INFORMATION
  Report Type: Spontaneous
  Country: NL (occurrence: NL)
  Receive Date: 20210802
  Receipt Date: 20210812
  Transmission Date: 20211014
  Serious: Yes (Life-Threatening)
  Sender: FDA-Public Use
  Company Number: NL-TEVA-2021-NL-1937879

PATIENT
  Age: 64 Year
  Sex: Male
  Weight: 96.6 kg

DRUGS (7)
  1. LISINOPRIL TABLET  5MG / BRAND NAME NOT SPECIFIED [Concomitant]
     Active Substance: LISINOPRIL
     Dosage: 5 MG (MILLIGRAM),THERAPY START DATE: ASKU,THERAPY END DATE:ASKU
  2. CIPROFLOXACINE TABLET 500MG / BRAND NAME NOT SPECIFIED [Suspect]
     Active Substance: CIPROFLOXACIN
     Indication: PYELONEPHRITIS
     Dosage: 1000 MILLIGRAM DAILY;  2 X PER DAY 1 PIECEFOR 7 DAYS
     Dates: start: 20210605, end: 20210714
  3. ROSUVASTATINE TABLET 10MG / BRAND NAME NOT SPECIFIED [Concomitant]
     Active Substance: ROSUVASTATIN
     Dosage: 10 MG (MILLIGRAM),THERAPY START DATE: ASKU,THERAPY END DATE:ASKU
  4. CARBASALAATCALCIUM BRUISTABLET 100MG / BRAND NAME NOT SPECIFIED [Concomitant]
     Dosage: 100 MG (MILLIGRAM),THERAPY START DATE: ASKU,THERAPY END DATE:ASKU
  5. METOPROLOL TABLET MGA  50MG (SUCCINAAT) / SELOKEEN ZOC  50 TABLET MGA [Concomitant]
     Dosage: 50 MG (MILLIGRAM),THERAPY START DATE: ASKU,THERAPY END DATE:ASKU
  6. TICAGRELOR TABLET 90MG / BRAND NAME NOT SPECIFIED [Concomitant]
     Dosage: 90 MG (MILLIGRAM),THERAPY START DATE: ASKU,THERAPY END DATE:ASKU
  7. ESOMEPRAZOL CAPSULE MSR 40MG / BRAND NAME NOT SPECIFIED [Concomitant]
     Active Substance: ESOMEPRAZOLE
     Dosage: 40 MG (MILLIGRAM),THERAPY START DATE: ASKU,THERAPY END DATE:ASKU

REACTIONS (1)
  - Coronary artery dissection [Recovering/Resolving]

NARRATIVE: CASE EVENT DATE: 20210612
